FAERS Safety Report 10592908 (Version 1)
Quarter: 2014Q4

REPORT INFORMATION
  Report Type: Spontaneous
  Country: US (occurrence: None)
  Receive Date: 20141118
  Receipt Date: 20141118
  Transmission Date: 20150529
  Serious: Yes (Life-Threatening, Hospitalization, Disabling, Other)
  Sender: FDA-Public Use
  Company Number: None

PATIENT
  Age: 30 Year
  Sex: Male
  Weight: 78.9 kg

DRUGS (1)
  1. NELARABINE [Suspect]
     Active Substance: NELARABINE
     Indication: ACUTE LYMPHOCYTIC LEUKAEMIA RECURRENT
     Dosage: ON D1, D3, AND D5
     Dates: start: 20140818, end: 20140914

REACTIONS (7)
  - Paraesthesia [None]
  - Hypoaesthesia [None]
  - Sensory loss [None]
  - Asthenia [None]
  - Urinary incontinence [None]
  - Motor dysfunction [None]
  - Movement disorder [None]

NARRATIVE: CASE EVENT DATE: 20141013
